FAERS Safety Report 5385150-8 (Version None)
Quarter: 2007Q3

REPORT INFORMATION
  Report Type: 
  Country: None (occurrence: None)
  Receive Date: 20070712
  Receipt Date: 20070705
  Transmission Date: 20080115
  Serious: Yes (Death, Other)
  Sender: FDA-Public Use
  Company Number: GR-BRISTOL-MYERS SQUIBB COMPANY-13841515

PATIENT
  Age: 7 Year
  Sex: Female

DRUGS (9)
  1. CYCLOPHOSPHAMIDE [Suspect]
     Indication: DIFFUSE VASCULITIS
     Route: 042
     Dates: start: 20070427, end: 20070427
  2. KINERET [Suspect]
     Indication: DIFFUSE VASCULITIS
     Route: 058
     Dates: start: 20070414, end: 20070420
  3. PREDNISOLONE [Suspect]
     Indication: DIFFUSE VASCULITIS
     Route: 048
     Dates: start: 20010801, end: 20070512
  4. METHYLPREDNISOLONE [Suspect]
     Indication: DIFFUSE VASCULITIS
     Route: 042
     Dates: start: 20070503, end: 20070505
  5. CORTICOSTEROID [Concomitant]
     Indication: DIFFUSE VASCULITIS
  6. CYCLOSPORINE [Concomitant]
     Indication: DIFFUSE VASCULITIS
  7. METHOTREXATE [Concomitant]
     Indication: DIFFUSE VASCULITIS
  8. ETANERCEPT [Concomitant]
     Indication: DIFFUSE VASCULITIS
  9. AZATHIOPRINE [Concomitant]
     Indication: DIFFUSE VASCULITIS

REACTIONS (3)
  - HISTIOCYTOSIS HAEMATOPHAGIC [None]
  - IMMUNOSUPPRESSION [None]
  - PARVOVIRUS INFECTION [None]
